FAERS Safety Report 6674594-X (Version None)
Quarter: 2010Q2

REPORT INFORMATION
  Report Type: 
  Country: None (occurrence: None)
  Receive Date: 20100409
  Receipt Date: 20100329
  Transmission Date: 20101027
  Serious: Yes (Other)
  Sender: FDA-Public Use
  Company Number: JP-ROCHE-673893

PATIENT
  Sex: Female
  Weight: 28 kg

DRUGS (4)
  1. TAMIFLU [Suspect]
     Indication: INFLUENZA
     Dosage: DRUG: TAMIFLU DRY SYRUP 3%.
     Route: 048
     Dates: start: 20091124, end: 20091125
  2. MUCODYNE [Concomitant]
     Route: 048
     Dates: start: 20091124, end: 20091125
  3. KETOTEN [Concomitant]
     Dosage: DRUG: KETOTEN(KETOTIFEN FUMARATE).
     Route: 048
     Dates: start: 20091124, end: 20091125
  4. ACETAMINOPHEN [Concomitant]
     Dosage: DRUG: ACETAMINOPHEN(ACETAMINOPHEN). DOSE FORM: ORAL FORMULATION (NOT OTHERWISE SPECIFIED).
     Route: 048

REACTIONS (1)
  - ABNORMAL BEHAVIOUR [None]
